FAERS Safety Report 8131419-3 (Version None)
Quarter: 2012Q1

REPORT INFORMATION
  Report Type: 
  Country: None (occurrence: None)
  Receive Date: 20120207
  Receipt Date: 20120131
  Transmission Date: 20120608
  Serious: Yes (Other)
  Sender: FDA-Public Use
  Company Number: 2012-00104

PATIENT
  Age: 79 Year
  Sex: Male
  Weight: 74.8435 kg

DRUGS (4)
  1. GLIPIZIDE [Concomitant]
  2. LEVOFLOXACIN [Suspect]
     Indication: INFLUENZA
     Dosage: 500 MG (500 MG, 1 IN 1 D), PER ORAL
     Route: 048
     Dates: start: 20120125, end: 20120128
  3. ACETAMINOPHEN + DEXTROMETHORPHAN HYDROBROMIDE + PHENULEPHRINE HYDROCHL [Concomitant]
  4. ASPIRIN [Concomitant]

REACTIONS (3)
  - ASTHENIA [None]
  - MOVEMENT DISORDER [None]
  - FALL [None]
